FAERS Safety Report 8954797 (Version 1)
Quarter: 2012Q4

REPORT INFORMATION
  Report Type: 
  Country: CA (occurrence: CA)
  Receive Date: 20121207
  Receipt Date: 20121207
  Transmission Date: 20130627
  Serious: Yes (Hospitalization)
  Sender: FDA-Public Use
  Company Number: CA-B.I. PHARMACEUTICALS,INC./RIDGEFIELD-2012-CN-02469CN

PATIENT
  Age: 85 Year
  Sex: Female

DRUGS (1)
  1. PRADAX [Suspect]
     Dosage: 300 mg
     Route: 048

REACTIONS (4)
  - Activated partial thromboplastin time prolonged [Recovered/Resolved]
  - Haemoptysis [Recovered/Resolved]
  - International normalised ratio increased [Recovered/Resolved]
  - Rectal haemorrhage [Recovered/Resolved]
